FAERS Safety Report 18568662 (Version 1)
Quarter: 2020Q4

REPORT INFORMATION
  Report Type: Spontaneous
  Country: IT (occurrence: IT)
  Receive Date: 20201202
  Receipt Date: 20201202
  Transmission Date: 20210114
  Serious: Yes (Hospitalization)
  Sender: FDA-Public Use
  Company Number: IT-ACCORD-209764

PATIENT
  Age: 52 Year
  Sex: Female

DRUGS (3)
  1. CALCIUM LEVOFOLINATE TEVA [Suspect]
     Active Substance: LEVOLEUCOVORIN CALCIUM
     Indication: COLORECTAL CANCER STAGE IV
     Route: 042
     Dates: start: 20200424, end: 20200513
  2. FLUOROURACIL AHCL [Suspect]
     Active Substance: FLUOROURACIL
     Indication: COLORECTAL CANCER STAGE IV
     Route: 042
     Dates: start: 20200424, end: 20200513
  3. IRINOTECAN MYLAN [Suspect]
     Active Substance: IRINOTECAN
     Indication: COLORECTAL CANCER STAGE IV
     Route: 042
     Dates: start: 20200424, end: 20200513

REACTIONS (1)
  - Acute kidney injury [Recovering/Resolving]

NARRATIVE: CASE EVENT DATE: 20200629
